FAERS Safety Report 8251633-6 (Version None)
Quarter: 2012Q2

REPORT INFORMATION
  Report Type: 
  Country: None (occurrence: None)
  Receive Date: 20120402
  Receipt Date: 20111207
  Transmission Date: 20120825
  Serious: No
  Sender: FDA-Public Use
  Company Number: US-ABBOTT-11P-163-0883122-00

PATIENT
  Sex: Male
  Weight: 95.34 kg

DRUGS (9)
  1. EXFORGE [Concomitant]
     Indication: HYPERTENSION
  2. TESTOSTERONE [Concomitant]
     Dosage: TWO PACKETS ONCE DAILY
     Route: 061
  3. FISH OIL [Concomitant]
     Indication: PRODUCT USED FOR UNKNOWN INDICATION
  4. OXYCONTIN [Concomitant]
     Indication: PRODUCT USED FOR UNKNOWN INDICATION
     Dates: start: 19860101
  5. MULTI-VITAMINS [Concomitant]
     Indication: PRODUCT USED FOR UNKNOWN INDICATION
  6. ANDROGEL [Suspect]
     Indication: BLOOD TESTOSTERONE DECREASED
     Route: 061
  7. TESTOSTERONE [Concomitant]
     Indication: BLOOD TESTOSTERONE DECREASED
     Route: 061
  8. VITAMIN B-12 [Concomitant]
     Indication: PRODUCT USED FOR UNKNOWN INDICATION
  9. ANDROGEL [Suspect]
     Route: 061

REACTIONS (7)
  - CHILLS [None]
  - ALOPECIA [None]
  - FATIGUE [None]
  - FEELING ABNORMAL [None]
  - DRUG INEFFECTIVE [None]
  - LIBIDO DECREASED [None]
  - MALAISE [None]
